FAERS Safety Report 4280736-6 (Version None)
Quarter: 2004Q1

REPORT INFORMATION
  Report Type: 
  Country: None (occurrence: None)
  Receive Date: 20040129
  Receipt Date: 20031128
  Transmission Date: 20041129
  Serious: No
  Sender: FDA-Public Use
  Company Number: US-BRISTOL-MYERS SQUIBB COMPANY-12446233

PATIENT
  Sex: Female

DRUGS (1)
  1. METAGLIP [Suspect]

REACTIONS (4)
  - CHEST PAIN [None]
  - CHROMATURIA [None]
  - PHARYNGEAL ERYTHEMA [None]
  - PRODUCTIVE COUGH [None]
